FAERS Safety Report 8070435-7 (Version None)
Quarter: 2012Q1

REPORT INFORMATION
  Report Type: 
  Country: None (occurrence: None)
  Receive Date: 20120125
  Receipt Date: 20120116
  Transmission Date: 20120608
  Serious: Yes (Life-Threatening, Other)
  Sender: FDA-Public Use
  Company Number: FR-BRISTOL-MYERS SQUIBB COMPANY-16357659

PATIENT
  Age: 63 Year
  Sex: Male

DRUGS (8)
  1. ATENOLOL [Concomitant]
  2. GLUCOPHAGE [Suspect]
     Route: 048
     Dates: end: 20111030
  3. AMARYL [Concomitant]
     Dates: end: 20111030
  4. AMLODIPINE BESYLATE [Concomitant]
  5. PLAVIX [Concomitant]
  6. OLMESARTAN MEDOXOMIL + HCTZ [Concomitant]
     Dates: end: 20111030
  7. GLUCOR 100 [Concomitant]
     Dosage: 1DF= 3 IN 1 D
     Dates: end: 20111030
  8. ATORVASTATIN CALCIUM [Concomitant]

REACTIONS (3)
  - FEMORAL NECK FRACTURE [None]
  - METABOLIC ACIDOSIS [None]
  - RENAL FAILURE ACUTE [None]
